FAERS Safety Report 7685453-8 (Version None)
Quarter: 2011Q3

REPORT INFORMATION
  Report Type: 
  Country: None (occurrence: None)
  Receive Date: 20110816
  Receipt Date: 20100930
  Transmission Date: 20111222
  Serious: No
  Sender: FDA-Public Use
  Company Number: US-BRISTOL-MYERS SQUIBB COMPANY-15312473

PATIENT
  Age: 56 Year
  Sex: Male
  Weight: 82 kg

DRUGS (3)
  1. BYETTA [Concomitant]
  2. JANUMET [Concomitant]
  3. GLUCOVANCE [Suspect]
     Dates: start: 19950101

REACTIONS (1)
  - BLOOD GLUCOSE FLUCTUATION [None]
